FAERS Safety Report 16817784 (Version 1)
Quarter: 2019Q3

REPORT INFORMATION
  Report Type: Report from Study
  Country: None (occurrence: RO)
  Receive Date: 20190917
  Receipt Date: 20190917
  Transmission Date: 20191005
  Serious: Yes (Hospitalization)
  Sender: FDA-Public Use
  Company Number: RO-ABBVIE-19S-135-2829175-00

PATIENT
  Age: 82 Year
  Sex: Female

DRUGS (14)
  1. BETALOC ZOK [Concomitant]
     Active Substance: METOPROLOL SUCCINATE
     Indication: CARDIAC DISORDER
     Route: 048
  2. TERTENSIF SR [Concomitant]
     Active Substance: INDAPAMIDE
     Indication: CARDIAC DISORDER
     Route: 048
  3. RIVASTIGMINE. [Concomitant]
     Active Substance: RIVASTIGMINE
     Route: 062
  4. VIEKIRAX [Suspect]
     Active Substance: OMBITASVIR\PARITAPREVIR\RITONAVIR
     Indication: HEPATITIS C
     Route: 048
     Dates: start: 20190509, end: 20190610
  5. EXVIERA [Suspect]
     Active Substance: DASABUVIR
     Indication: HEPATIC CIRRHOSIS
  6. RIVASTIGMINE. [Concomitant]
     Active Substance: RIVASTIGMINE
     Indication: DEMENTIA ALZHEIMER^S TYPE
     Route: 062
  7. GERODORM [Concomitant]
     Active Substance: CINOLAZEPAM
     Indication: INSOMNIA
     Route: 048
  8. VIEKIRAX [Suspect]
     Active Substance: OMBITASVIR\PARITAPREVIR\RITONAVIR
     Indication: HEPATIC CIRRHOSIS
  9. EXVIERA [Suspect]
     Active Substance: DASABUVIR
     Indication: HEPATITIS C
     Route: 048
     Dates: start: 20190509, end: 20190610
  10. ASPENTER [Concomitant]
     Active Substance: ASPIRIN
     Indication: CARDIAC DISORDER
     Route: 048
  11. XANAX [Concomitant]
     Active Substance: ALPRAZOLAM
     Indication: INSOMNIA
     Dosage: WHEN NEEDED
     Route: 048
  12. ZOMEN [Concomitant]
     Indication: CARDIAC DISORDER
     Route: 048
  13. TENAXUM [Concomitant]
     Active Substance: RILMENIDINE
     Indication: CARDIAC DISORDER
     Route: 048
  14. RIVASTIGMINE. [Concomitant]
     Active Substance: RIVASTIGMINE
     Route: 062

REACTIONS (14)
  - Contusion [Unknown]
  - Tongue coated [Unknown]
  - Acquired diaphragmatic eventration [Unknown]
  - Skin wrinkling [Unknown]
  - Decreased appetite [Recovered/Resolved]
  - Hypotonia [Unknown]
  - Slow speech [Unknown]
  - Laboratory test abnormal [Not Recovered/Not Resolved]
  - Insomnia [Not Recovered/Not Resolved]
  - Syncope [Recovered/Resolved]
  - Asthenia [Recovered/Resolved]
  - Dizziness [Recovered/Resolved]
  - Bradyphrenia [Unknown]
  - Malaise [Not Recovered/Not Resolved]

NARRATIVE: CASE EVENT DATE: 2019
